FAERS Safety Report 17930119 (Version 8)
Quarter: 2021Q1

REPORT INFORMATION
  Report Type: Spontaneous
  Country: GB (occurrence: GB)
  Receive Date: 20200623
  Receipt Date: 20210225
  Transmission Date: 20210419
  Serious: Yes (Hospitalization, Other)
  Sender: FDA-Public Use
  Company Number: NVSC2020GB172502

PATIENT
  Age: 33 Year
  Sex: Female

DRUGS (7)
  1. POSACONAZOLE [Suspect]
     Active Substance: POSACONAZOLE
     Indication: ANTIFUNGAL PROPHYLAXIS
     Dosage: UNK(MODIFIED RELEASE TABLET) (HARD CAPSULES)
     Route: 048
  2. ISAVUCONAZOLE [Suspect]
     Active Substance: ISAVUCONAZOLE
     Indication: ANTIFUNGAL PROPHYLAXIS
  3. AMPHOTERICINE B, LIPOSOME [Suspect]
     Active Substance: AMPHOTERICIN B
     Indication: FUSARIUM INFECTION
     Dosage: 3 MG/KG, QD
     Route: 065
  4. AMPHOTERICINE B, LIPOSOME [Suspect]
     Active Substance: AMPHOTERICIN B
     Dosage: UNK (ADMINISTERED THROUGH A PERIPHERALLY INSERTED, ADMINISTERED POST DISCHARGE)
     Route: 050
  5. ENVARSUS XR [Suspect]
     Active Substance: TACROLIMUS
     Indication: LUNG TRANSPLANT
     Dosage: UNK, QD
     Route: 065
  6. ENVARSUS XR [Suspect]
     Active Substance: TACROLIMUS
     Indication: IMMUNOSUPPRESSANT DRUG THERAPY
  7. ISAVUCONAZOLE [Suspect]
     Active Substance: ISAVUCONAZOLE
     Indication: FUSARIUM INFECTION
     Dosage: UNK (INCREASED DOSE) (HARD CAPSULES)
     Route: 048

REACTIONS (9)
  - Fusarium infection [Recovered/Resolved]
  - Respiratory syncytial virus infection [Recovering/Resolving]
  - Flavobacterium infection [Recovering/Resolving]
  - Pneumonia [Recovered/Resolved]
  - Bacterial infection [Recovered/Resolved]
  - Acute kidney injury [Recovered/Resolved]
  - Respiratory disorder [Recovering/Resolving]
  - Off label use [Unknown]
  - Product use in unapproved indication [Unknown]
